FAERS Safety Report 6282124-X (Version None)
Quarter: 2009Q3

REPORT INFORMATION
  Report Type: 
  Country: None (occurrence: None)
  Receive Date: 20090724
  Receipt Date: 20090720
  Transmission Date: 20100115
  Serious: Yes (Other)
  Sender: FDA-Public Use
  Company Number: IN-ROXANE LABORATORIES, INC.-2009-RO-00719RO

PATIENT
  Age: 34 Year
  Sex: Male

DRUGS (12)
  1. CITALOPRAM HYDROBROMIDE [Suspect]
     Indication: DEPRESSION
  2. PROPRANOLOL HYDROCHLORIDE [Suspect]
     Dosage: 30 MG
  3. TRIFLUOPERAZINE [Suspect]
     Indication: DEPRESSION
  4. TRIHEXYPHENIDYL [Suspect]
  5. TETRABENAZINE [Concomitant]
     Indication: TARDIVE DYSKINESIA
  6. TETRABENAZINE [Concomitant]
     Dosage: 50 MG
  7. TETRABENAZINE [Concomitant]
     Dosage: 75 MG
  8. TETRABENAZINE [Concomitant]
     Dosage: 150 MG
  9. CLONAZEPAM [Concomitant]
     Indication: TARDIVE DYSKINESIA
     Dosage: 0.5 NR
  10. CLONAZEPAM [Concomitant]
  11. VITAMIN E [Concomitant]
     Indication: TARDIVE DYSKINESIA
     Dosage: 400 MG
  12. VITAMIN E [Concomitant]
     Dosage: 1600 MG

REACTIONS (5)
  - BACK PAIN [None]
  - DYSPHAGIA [None]
  - DYSPNOEA [None]
  - NECK PAIN [None]
  - TARDIVE DYSKINESIA [None]
